FAERS Safety Report 9302681 (Version 1)
Quarter: 2013Q2

REPORT INFORMATION
  Report Type: Spontaneous
  Country: FR (occurrence: FR)
  Receive Date: 20130522
  Receipt Date: 20130522
  Transmission Date: 20140414
  Serious: Yes (Hospitalization)
  Sender: FDA-Public Use
  Company Number: FR-JNJFOC-20130505917

PATIENT
  Age: 78 Year
  Sex: Female

DRUGS (16)
  1. RISPERDAL [Suspect]
     Indication: PRODUCT USED FOR UNKNOWN INDICATION
     Route: 048
     Dates: start: 20130416, end: 20130422
  2. HALDOL [Concomitant]
     Indication: HYPERTENSION
     Route: 065
  3. HALDOL [Concomitant]
     Indication: DEMENTIA
     Route: 065
  4. HALDOL [Concomitant]
     Indication: DEMENTIA ALZHEIMER^S TYPE
     Route: 065
  5. CYMBALTA [Concomitant]
     Indication: HYPERTENSION
     Route: 065
  6. CYMBALTA [Concomitant]
     Indication: DEMENTIA
     Route: 065
  7. CYMBALTA [Concomitant]
     Indication: DEMENTIA ALZHEIMER^S TYPE
     Route: 065
  8. APROVEL [Concomitant]
     Indication: HYPERTENSION
     Route: 065
  9. APROVEL [Concomitant]
     Indication: DEMENTIA
     Route: 065
  10. APROVEL [Concomitant]
     Indication: DEMENTIA ALZHEIMER^S TYPE
     Route: 065
  11. DOLIPRANE [Concomitant]
     Indication: DEMENTIA
     Route: 065
  12. DOLIPRANE [Concomitant]
     Indication: DEMENTIA ALZHEIMER^S TYPE
     Route: 065
  13. DOLIPRANE [Concomitant]
     Indication: HYPERTENSION
     Route: 065
  14. MOVICOL [Concomitant]
     Indication: DEMENTIA
     Route: 065
  15. MOVICOL [Concomitant]
     Indication: DEMENTIA ALZHEIMER^S TYPE
     Route: 065
  16. MOVICOL [Concomitant]
     Indication: HYPERTENSION
     Route: 065

REACTIONS (2)
  - Toxic skin eruption [Recovered/Resolved]
  - Rash maculo-papular [Recovered/Resolved]
